FAERS Safety Report 4843572-5 (Version None)
Quarter: 2005Q4

REPORT INFORMATION
  Report Type: 
  Country: None (occurrence: None)
  Receive Date: 20051202
  Receipt Date: 20050920
  Transmission Date: 20060501
  Serious: Yes (Congenital Anomaly)
  Sender: FDA-Public Use
  Company Number: NL-ABBOTT-05P-114-0311682-00

PATIENT
  Sex: Female

DRUGS (7)
  1. KALETRA [Suspect]
     Indication: DRUG EXPOSURE DURING PREGNANCY
  2. KALETRA [Suspect]
     Route: 048
  3. ZIDOVUDINE W/LAMIVUDINE [Suspect]
     Indication: DRUG EXPOSURE DURING PREGNANCY
  4. ZIDOVUDINE W/LAMIVUDINE [Suspect]
     Route: 048
     Dates: end: 20050221
  5. TENOFOVIR [Suspect]
     Indication: DRUG EXPOSURE DURING PREGNANCY
  6. TENOFOVIR [Suspect]
     Route: 048
  7. ZIDOVUDINE [Suspect]
     Indication: DRUG EXPOSURE DURING PREGNANCY

REACTIONS (3)
  - CONGENITAL PYELOCALIECTASIS [None]
  - DRUG EXPOSURE DURING PREGNANCY [None]
  - PREMATURE BABY [None]
